FAERS Safety Report 19489518 (Version 1)
Quarter: 2021Q3

REPORT INFORMATION
  Report Type: Report from Study
  Country: HN (occurrence: HN)
  Receive Date: 20210703
  Receipt Date: 20210703
  Transmission Date: 20211014
  Serious: Yes (Other)
  Sender: FDA-Public Use
  Company Number: NVSC2021HN147167

PATIENT
  Age: 78 Year
  Sex: Female

DRUGS (3)
  1. EXFORGE HCT [Suspect]
     Active Substance: AMLODIPINE BESYLATE\HYDROCHLOROTHIAZIDE\VALSARTAN
     Indication: HYPERTENSION
     Dosage: UNK
     Route: 065
  2. EXFORGE [Suspect]
     Active Substance: AMLODIPINE BESYLATE\VALSARTAN
     Dosage: 160/5 MG UNK
     Route: 065
  3. EXFORGE [Suspect]
     Active Substance: AMLODIPINE BESYLATE\VALSARTAN
     Indication: HYPERTENSION
     Dosage: 320/10 MG
     Route: 065

REACTIONS (9)
  - Drug ineffective [Unknown]
  - Inflammation [Unknown]
  - Blood pressure decreased [Unknown]
  - Osteonecrosis [Unknown]
  - Overdose [Unknown]
  - Peripheral swelling [Unknown]
  - Drug intolerance [Unknown]
  - Memory impairment [Unknown]
  - Arthralgia [Unknown]
